FAERS Safety Report 25023824 (Version 1)
Quarter: 2025Q1

REPORT INFORMATION
  Report Type: Spontaneous
  Country: SE (occurrence: SE)
  Receive Date: 20250228
  Receipt Date: 20250228
  Transmission Date: 20250408
  Serious: Yes (Hospitalization, Other)
  Sender: ALEXION PHARMACEUTICALS
  Company Number: SE-CHEPLA-2025002408

PATIENT
  Age: 16 Year

DRUGS (2)
  1. QUETIAPINE [Suspect]
     Active Substance: QUETIAPINE
  2. LISDEXAMFETAMINE DIMESYLATE [Suspect]
     Active Substance: LISDEXAMFETAMINE DIMESYLATE

REACTIONS (2)
  - Intentional overdose [Unknown]
  - Intentional self-injury [Unknown]
